FAERS Safety Report 5602692-8 (Version None)
Quarter: 2008Q1

REPORT INFORMATION
  Report Type: 
  Country: None (occurrence: None)
  Receive Date: 20080125
  Receipt Date: 20080115
  Transmission Date: 20080703
  Serious: Yes (Other)
  Sender: FDA-Public Use
  Company Number: SE-SANOFI-SYNTHELABO-A01200800432

PATIENT
  Sex: Male

DRUGS (5)
  1. TIPAROL [Suspect]
     Indication: PROSTATIC DISORDER
     Dosage: 100 MG
     Route: 065
     Dates: start: 20060601
  2. VIAGRA [Suspect]
     Indication: DRUG USE FOR UNKNOWN INDICATION
     Dosage: UNK
     Route: 048
     Dates: start: 20050101
  3. VESICARE [Suspect]
     Indication: PROSTATIC DISORDER
     Dosage: UNK
     Route: 065
     Dates: start: 20060601
  4. CIALIS [Suspect]
     Indication: DRUG USE FOR UNKNOWN INDICATION
     Dosage: UNK
     Route: 048
     Dates: start: 20050101
  5. XATRAL OD [Suspect]
     Indication: PROSTATISM
     Route: 048
     Dates: start: 20060601

REACTIONS (1)
  - GLAUCOMA [None]
